FAERS Safety Report 11984073 (Version 3)
Quarter: 2016Q2

REPORT INFORMATION
  Report Type: Report from Study
  Country: MY (occurrence: MY)
  Receive Date: 20160201
  Receipt Date: 20160408
  Transmission Date: 20160815
  Serious: Yes (Other)
  Sender: FDA-Public Use
  Company Number: PHHY2016MY012740

PATIENT
  Age: 19 Year
  Sex: Male
  Weight: 50 kg

DRUGS (1)
  1. TASIGNA [Suspect]
     Active Substance: NILOTINIB
     Indication: CHRONIC MYELOID LEUKAEMIA
     Dosage: 400 MG, UNK
     Route: 065
     Dates: start: 20130729, end: 20150709

REACTIONS (2)
  - Electrocardiogram QT prolonged [Recovering/Resolving]
  - Arrhythmia [Unknown]

NARRATIVE: CASE EVENT DATE: 20150709
